FAERS Safety Report 24259365 (Version 1)
Quarter: 2024Q3

REPORT INFORMATION
  Report Type: Spontaneous
  Country: GB (occurrence: GB)
  Receive Date: 20240828
  Receipt Date: 20240828
  Transmission Date: 20241017
  Serious: Yes (Other)
  Sender: ROCHE
  Company Number: None

PATIENT
  Age: 17 Day
  Sex: Female

DRUGS (10)
  1. PULMOZYME [Interacting]
     Active Substance: DORNASE ALFA
     Indication: Pulmonary congestion
     Dosage: 1.25MG TWICE DAILY
     Route: 065
     Dates: start: 20240820, end: 20240821
  2. NITRIC OXIDE [Concomitant]
     Active Substance: NITRIC OXIDE
     Indication: Pulmonary hypertension
     Route: 050
     Dates: start: 20240812
  3. CAFFEINE [Concomitant]
     Active Substance: CAFFEINE
     Indication: Respiratory distress
     Route: 050
     Dates: start: 20240803
  4. CEFOTAXIME [Concomitant]
     Active Substance: CEFOTAXIME SODIUM
     Indication: Sepsis neonatal
     Route: 050
     Dates: start: 20240811
  5. HYDROCORTISONE [Concomitant]
     Active Substance: HYDROCORTISONE\HYDROCORTISONE ACETATE
     Indication: Neonatal respiratory distress
     Route: 050
     Dates: start: 20240811
  6. VANCOMYCIN [Concomitant]
     Active Substance: VANCOMYCIN
     Indication: Sepsis neonatal
     Route: 050
     Dates: start: 20240811
  7. METRONIDAZOLE [Concomitant]
     Active Substance: METRONIDAZOLE
     Indication: Neonatal intestinal perforation
     Route: 050
     Dates: start: 20240813
  8. FLUCONAZOLE [Concomitant]
     Active Substance: FLUCONAZOLE
     Indication: Antifungal prophylaxis
     Route: 050
     Dates: start: 20240813
  9. SMOFLIPID [Concomitant]
     Active Substance: FISH OIL\MEDIUM-CHAIN TRIGLYCERIDES\OLIVE OIL\SOYBEAN OIL
     Indication: Parenteral nutrition
     Route: 050
     Dates: start: 20240803
  10. MORPHINE [Concomitant]
     Active Substance: MORPHINE
     Indication: Mechanical ventilation
     Route: 050
     Dates: start: 20240803

REACTIONS (1)
  - Drug interaction [Recovered/Resolved with Sequelae]

NARRATIVE: CASE EVENT DATE: 20240820
